FAERS Safety Report 12170058 (Version 1)
Quarter: 2016Q1

REPORT INFORMATION
  Report Type: Report from Study
  Country: US (occurrence: US)
  Receive Date: 20160310
  Receipt Date: 20160310
  Transmission Date: 20160526
  Serious: No
  Sender: FDA-Public Use
  Company Number: US-AMGEN-USASL2016027199

PATIENT
  Age: 55 Year
  Sex: Female

DRUGS (1)
  1. ENBREL [Suspect]
     Active Substance: ETANERCEPT
     Indication: RHEUMATOID ARTHRITIS
     Dosage: 50  MG, QWK
     Route: 065
     Dates: start: 201202

REACTIONS (2)
  - Respiratory disorder [Unknown]
  - Sinus disorder [Unknown]

NARRATIVE: CASE EVENT DATE: 2012
